FAERS Safety Report 18654244 (Version 1)
Quarter: 2020Q4

REPORT INFORMATION
  Report Type: Report from Study
  Country: US (occurrence: US)
  Receive Date: 20201223
  Receipt Date: 20201223
  Transmission Date: 20210114
  Serious: Yes (Death)
  Sender: FDA-Public Use
  Company Number: US-VIFOR (INTERNATIONAL) INC.-VIT-2020-12329

PATIENT
  Sex: Male

DRUGS (1)
  1. VELPHORO [Suspect]
     Active Substance: SUCROFERRIC OXYHYDROXIDE
     Indication: PHOSPHORUS METABOLISM DISORDER
     Dosage: 500 MG OF EIGHT TABLETS DAILY
     Route: 048

REACTIONS (2)
  - Death [Fatal]
  - Overdose [Unknown]
